FAERS Safety Report 16862850 (Version 3)
Quarter: 2021Q2

REPORT INFORMATION
  Report Type: Spontaneous
  Country: US (occurrence: US)
  Receive Date: 20190927
  Receipt Date: 20210511
  Transmission Date: 20210716
  Serious: Yes (Other)
  Sender: FDA-Public Use
  Company Number: US-GILEAD-2019-0429741

PATIENT
  Age: 62 Year
  Sex: Male
  Weight: 91.61 kg

DRUGS (33)
  1. EPIVIR [Concomitant]
     Active Substance: LAMIVUDINE
  2. SODIUM BICARBONATE. [Concomitant]
     Active Substance: SODIUM BICARBONATE
  3. CALCITRIOL. [Concomitant]
     Active Substance: CALCITRIOL
  4. LIPITOR [Concomitant]
     Active Substance: ATORVASTATIN CALCIUM
  5. LISINOPRIL + HIDROCLOROTIAZIDA [Concomitant]
     Active Substance: HYDROCHLOROTHIAZIDE\LISINOPRIL
  6. ERGOCALCIFEROL. [Concomitant]
     Active Substance: ERGOCALCIFEROL
  7. CALCIUM ACETATE. [Concomitant]
     Active Substance: CALCIUM ACETATE
  8. LASIX [Concomitant]
     Active Substance: FUROSEMIDE
  9. COREG [Concomitant]
     Active Substance: CARVEDILOL
  10. RANITIDINE. [Concomitant]
     Active Substance: RANITIDINE
  11. AZITHROMYCIN ANHYDROUS. [Concomitant]
     Active Substance: AZITHROMYCIN ANHYDROUS
  12. NORVASC [Concomitant]
     Active Substance: AMLODIPINE BESYLATE
  13. IBUPROFEN. [Concomitant]
     Active Substance: IBUPROFEN
  14. PERCOCET [OXYCODONE HYDROCHLORIDE;OXYCODONE TEREPHTHALATE;PARACETAMOL] [Concomitant]
     Active Substance: ACETAMINOPHEN\OXYCODONE HYDROCHLORIDE\OXYCODONE TEREPHTHALATE
  15. ATRIPLA [Suspect]
     Active Substance: EFAVIRENZ\EMTRICITABINE\TENOFOVIR DISOPROXIL FUMARATE
     Dosage: UNK
     Route: 048
     Dates: start: 20070530, end: 201106
  16. EPZICOM [Concomitant]
     Active Substance: ABACAVIR SULFATE\LAMIVUDINE
  17. RETROVIR [Concomitant]
     Active Substance: ZIDOVUDINE
  18. REYATAZ [Concomitant]
     Active Substance: ATAZANAVIR SULFATE
  19. TIVICAY [Concomitant]
     Active Substance: DOLUTEGRAVIR SODIUM
  20. FLUZONE [INFLUENZA VACCINE] [Concomitant]
  21. ATRIPLA [Suspect]
     Active Substance: EFAVIRENZ\EMTRICITABINE\TENOFOVIR DISOPROXIL FUMARATE
     Indication: HIV INFECTION
     Dosage: UNK
     Route: 048
     Dates: start: 2006
  22. PREZISTA [Concomitant]
     Active Substance: DARUNAVIR ETHANOLATE
  23. MULTIVITAMIN IRON [Concomitant]
  24. ATORVASTATIN [Concomitant]
     Active Substance: ATORVASTATIN
  25. ATRIPLA [Suspect]
     Active Substance: EFAVIRENZ\EMTRICITABINE\TENOFOVIR DISOPROXIL FUMARATE
     Dosage: UNK
     Route: 048
     Dates: start: 20070520, end: 20110702
  26. COMBIVIR [Concomitant]
     Active Substance: LAMIVUDINE\ZIDOVUDINE
  27. LEXIVA [Concomitant]
     Active Substance: FOSAMPRENAVIR CALCIUM
  28. NORVIR [Concomitant]
     Active Substance: RITONAVIR
  29. FLUDROCORTISONE [Concomitant]
     Active Substance: FLUDROCORTISONE
  30. VITAMIN D3 [Concomitant]
     Active Substance: CHOLECALCIFEROL
  31. AMLODIPINE [Concomitant]
     Active Substance: AMLODIPINE BESYLATE
  32. FUROSEMIDE. [Concomitant]
     Active Substance: FUROSEMIDE
  33. KALETRA [Concomitant]
     Active Substance: LOPINAVIR\RITONAVIR

REACTIONS (13)
  - Fatigue [Unknown]
  - Economic problem [Not Recovered/Not Resolved]
  - Nephrogenic anaemia [Unknown]
  - Quality of life decreased [Unknown]
  - Anxiety [Unknown]
  - Pain [Not Recovered/Not Resolved]
  - Emotional distress [Not Recovered/Not Resolved]
  - Chronic kidney disease [Not Recovered/Not Resolved]
  - Anxiety [Not Recovered/Not Resolved]
  - Renal failure [Not Recovered/Not Resolved]
  - Loss of personal independence in daily activities [Unknown]
  - Decreased activity [Unknown]
  - Anhedonia [Not Recovered/Not Resolved]

NARRATIVE: CASE EVENT DATE: 201105
